FAERS Safety Report 16126682 (Version 9)
Quarter: 2019Q3

REPORT INFORMATION
  Report Type: Spontaneous
  Country: BR (occurrence: BR)
  Receive Date: 20190328
  Receipt Date: 20190930
  Transmission Date: 20191004
  Serious: Yes (Hospitalization, Other)
  Sender: FDA-Public Use
  Company Number: BR-GLAXOSMITHKLINE-BR2019GSK054660

PATIENT
  Sex: Female
  Weight: 80 kg

DRUGS (1)
  1. NUCALA [Suspect]
     Active Substance: MEPOLIZUMAB
     Indication: ASTHMA
     Dosage: 100 MG, UNK
     Route: 042
     Dates: start: 20190220

REACTIONS (7)
  - Dyspnoea [Unknown]
  - Headache [Recovered/Resolved]
  - Circumstance or information capable of leading to medication error [Not Recovered/Not Resolved]
  - Influenza [Recovered/Resolved]
  - Incorrect product administration duration [Unknown]
  - Fatigue [Unknown]
  - Asthmatic crisis [Unknown]
